FAERS Safety Report 16093804 (Version 2)
Quarter: 2019Q2

REPORT INFORMATION
  Report Type: Spontaneous
  Country: US (occurrence: US)
  Receive Date: 20190320
  Receipt Date: 20190509
  Transmission Date: 20190711
  Serious: Yes (Hospitalization, Other)
  Sender: FDA-Public Use
  Company Number: US-TAKEDA-2019TUS012551

PATIENT
  Sex: Female

DRUGS (1)
  1. NINLARO [Suspect]
     Active Substance: IXAZOMIB CITRATE
     Indication: PLASMA CELL MYELOMA
     Dosage: 4 MILLIGRAM, 1/WEEK
     Route: 048
     Dates: start: 20181215

REACTIONS (9)
  - Renal impairment [Unknown]
  - Cardiac failure congestive [Unknown]
  - Pneumonia [Unknown]
  - Pleural effusion [Unknown]
  - Cystitis [Unknown]
  - Diarrhoea [Unknown]
  - Urinary tract infection [Unknown]
  - Localised infection [Unknown]
  - Candida infection [Unknown]
